FAERS Safety Report 25520575 (Version 1)
Quarter: 2025Q3

REPORT INFORMATION
  Report Type: Other
  Country: US (occurrence: US)
  Receive Date: 20250704
  Receipt Date: 20250704
  Transmission Date: 20251021
  Serious: Yes (Life-Threatening, Other)
  Sender: AIRGAS
  Company Number: US-LHC-2025006543

PATIENT
  Age: 79 Year
  Sex: Male
  Weight: 63 kg

DRUGS (12)
  1. CARBON DIOXIDE [Suspect]
     Active Substance: CARBON DIOXIDE
     Indication: Cholecystectomy
  2. LOSARTAN [Concomitant]
     Active Substance: LOSARTAN
  3. METRONIDAZOLE [Concomitant]
     Active Substance: METRONIDAZOLE
  4. CEFTRIAXONE [Concomitant]
     Active Substance: CEFTRIAXONE
  5. SEVOFLURANE [Concomitant]
     Active Substance: SEVOFLURANE
  6. LIDOCAINE [Concomitant]
     Active Substance: LIDOCAINE
  7. ROCURONIUM [Concomitant]
     Active Substance: ROCURONIUM BROMIDE
  8. FENTANYL [Concomitant]
     Active Substance: FENTANYL
  9. PROPOFOL [Concomitant]
     Active Substance: PROPOFOL
  10. MIDAZOLAM [Concomitant]
     Active Substance: MIDAZOLAM
  11. TAMSULOSIN [Concomitant]
     Active Substance: TAMSULOSIN
  12. FINASTERIDE [Concomitant]
     Active Substance: FINASTERIDE

REACTIONS (2)
  - Air embolism [Recovered/Resolved]
  - Injury associated with device [Recovered/Resolved]
